FAERS Safety Report 19683837 (Version 1)
Quarter: 2021Q3

REPORT INFORMATION
  Report Type: Spontaneous
  Country: US (occurrence: US)
  Receive Date: 20210811
  Receipt Date: 20210811
  Transmission Date: 20211014
  Serious: Yes (Other)
  Sender: FDA-Public Use
  Company Number: US-TEVA-2021-US-1939532

PATIENT
  Age: 68 Year
  Sex: Male

DRUGS (1)
  1. CLONIDINE. [Suspect]
     Active Substance: CLONIDINE
     Indication: BLOOD PRESSURE MANAGEMENT
     Route: 065
     Dates: start: 20210721

REACTIONS (4)
  - Nephrolithiasis [Unknown]
  - Nausea [Unknown]
  - Blood pressure increased [Unknown]
  - Eye disorder [Unknown]

NARRATIVE: CASE EVENT DATE: 20210728
